FAERS Safety Report 4878586-2 (Version None)
Quarter: 2006Q1

REPORT INFORMATION
  Report Type: 
  Country: None (occurrence: None)
  Receive Date: 20060112
  Receipt Date: 20040825
  Transmission Date: 20060701
  Serious: Yes (Hospitalization)
  Sender: FDA-Public Use
  Company Number: IE-2004-BP-07270BP

PATIENT
  Sex: Male
  Weight: 89 kg

DRUGS (9)
  1. MICARDIS [Suspect]
     Indication: CARDIOVASCULAR DISORDER
     Route: 048
     Dates: start: 20030305, end: 20040822
  2. MICARDIS [Suspect]
     Indication: CEREBROVASCULAR ACCIDENT PROPHYLAXIS
  3. RAMIPRIL [Suspect]
     Indication: CARDIOVASCULAR DISORDER
     Route: 048
     Dates: start: 20030305, end: 20040822
  4. RAMIPRIL [Suspect]
     Indication: CEREBROVASCULAR ACCIDENT PROPHYLAXIS
  5. ASPIRIN [Concomitant]
  6. ZOCOR [Concomitant]
  7. SEREVENT [Concomitant]
  8. SPIRIVA [Concomitant]
  9. SINGULAIR [Concomitant]

REACTIONS (2)
  - RESPIRATORY TRACT INFECTION [None]
  - SYNCOPE VASOVAGAL [None]
